FAERS Safety Report 22735928 (Version 6)
Quarter: 2023Q4

REPORT INFORMATION
  Report Type: Spontaneous
  Country: NL (occurrence: NL)
  Receive Date: 20230721
  Receipt Date: 20231110
  Transmission Date: 20240110
  Serious: Yes (Other)
  Sender: FDA-Public Use
  Company Number: NL-CELLTRION INC.-2023NL014331

PATIENT

DRUGS (8)
  1. INFLIXIMAB [Interacting]
     Active Substance: INFLIXIMAB
     Indication: Product used for unknown indication
     Dosage: 0.5 MCG/ML
  2. RITUXIMAB [Interacting]
     Active Substance: RITUXIMAB
     Indication: Non-Hodgkin^s lymphoma
     Dosage: UNK
     Route: 064
  3. REMICADE [Interacting]
     Active Substance: INFLIXIMAB
     Indication: Crohn^s disease
     Dosage: 0.5 MCG/ML
     Route: 064
  4. DOXORUBICIN [Interacting]
     Active Substance: DOXORUBICIN
     Indication: Non-Hodgkin^s lymphoma
     Route: 064
  5. VINCRISTINE [Interacting]
     Active Substance: VINCRISTINE
     Indication: Non-Hodgkin^s lymphoma
     Route: 064
  6. CYCLOPHOSPHAMIDE [Interacting]
     Active Substance: CYCLOPHOSPHAMIDE
     Indication: Non-Hodgkin^s lymphoma
     Route: 064
  7. PREDNISONE [Interacting]
     Active Substance: PREDNISONE
     Indication: Non-Hodgkin^s lymphoma
     Dosage: UNK
     Route: 065
  8. PNEUMOCOCCAL VACCINE POLYVALENT [Interacting]
     Active Substance: PNEUMOCOCCAL VACCINE POLYVALENT
     Indication: Prophylaxis
     Route: 065

REACTIONS (5)
  - Hypogammaglobulinaemia [Unknown]
  - Premature baby [Recovered/Resolved]
  - Vaccine interaction [Unknown]
  - Vaccination failure [Recovered/Resolved]
  - Foetal exposure during pregnancy [Recovered/Resolved]
